FAERS Safety Report 16801814 (Version 4)
Quarter: 2019Q4

REPORT INFORMATION
  Report Type: Report from Study
  Country: US (occurrence: US)
  Receive Date: 20190912
  Receipt Date: 20191031
  Transmission Date: 20200122
  Serious: Yes (Hospitalization, Other)
  Sender: FDA-Public Use
  Company Number: US-SA-2019SA254179

PATIENT
  Age: 3 Year
  Sex: Male

DRUGS (3)
  1. LARONIDASE [Suspect]
     Active Substance: LARONIDASE
     Dosage: 8.70 UNK, FREQUENCY, Q1
     Route: 041
     Dates: start: 20180629
  2. LARONIDASE [Suspect]
     Active Substance: LARONIDASE
     Indication: MUCOPOLYSACCHARIDOSIS I
     Dosage: 8.7 MG, QW
     Route: 041
     Dates: start: 20180104
  3. LARONIDASE [Suspect]
     Active Substance: LARONIDASE
     Dosage: 8.70 UNK, FREQUENCY Q1
     Route: 041

REACTIONS (5)
  - Pyrexia [Unknown]
  - Sepsis [Recovered/Resolved]
  - Viral infection [Unknown]
  - Vomiting [Unknown]
  - Arthralgia [Unknown]

NARRATIVE: CASE EVENT DATE: 20190831
